FAERS Safety Report 4421365-0 (Version None)
Quarter: 2004Q3

REPORT INFORMATION
  Report Type: 
  Country: None (occurrence: None)
  Receive Date: 20040804
  Receipt Date: 20040723
  Transmission Date: 20050211
  Serious: Yes (Hospitalization)
  Sender: FDA-Public Use
  Company Number: 2004223156FR

PATIENT
  Age: 65 Year
  Sex: Female
  Weight: 90 kg

DRUGS (7)
  1. AROMASIN [Suspect]
     Indication: BREAST CANCER
     Dosage: ORAL
     Route: 048
     Dates: start: 20040520, end: 20040601
  2. NOLVADEX [Concomitant]
  3. LEVOTHYROXINE SODIUM [Concomitant]
  4. DIAMICRON  (GLICLAZIDE) [Concomitant]
  5. MEDIATOR         (BENFLUOREX HYDROCHLORIDE) [Concomitant]
  6. OMEPRAZOLE [Concomitant]
  7. ABUFENE (BETA-ALANINE) [Concomitant]

REACTIONS (8)
  - DIARRHOEA [None]
  - DIVERTICULUM INTESTINAL [None]
  - GLYCOSYLATED HAEMOGLOBIN INCREASED [None]
  - HAEMATOCRIT DECREASED [None]
  - HAEMOGLOBIN DECREASED [None]
  - INNER EAR DISORDER [None]
  - LABORATORY TEST ABNORMAL [None]
  - VERTIGO [None]
